FAERS Safety Report 5822826-X (Version None)
Quarter: 2008Q3

REPORT INFORMATION
  Report Type: 
  Country: None (occurrence: None)
  Receive Date: 20080725
  Receipt Date: 20080716
  Transmission Date: 20090109
  Serious: Yes (Hospitalization)
  Sender: FDA-Public Use
  Company Number: DE-BRISTOL-MYERS SQUIBB COMPANY-14271530

PATIENT
  Age: 62 Year
  Sex: Female

DRUGS (3)
  1. CETUXIMAB [Suspect]
     Indication: BILE DUCT CANCER
     Dosage: 500 MG/M2 WITH TOTAL DOSE OF 900 MG
     Route: 042
     Dates: start: 20080611, end: 20080611
  2. OXALIPLATIN [Suspect]
     Indication: BILE DUCT CANCER
     Dosage: 100 MG/M2 WITH TOTAL DOSE OF 180MG
     Route: 042
     Dates: start: 20080611, end: 20080611
  3. GEMCITABINE [Suspect]
     Indication: BILE DUCT CANCER
     Dosage: 1000MG/M2 WITH TOTAL DOSE OF 1800 MG
     Route: 042
     Dates: start: 20080611, end: 20080611

REACTIONS (2)
  - COLITIS [None]
  - THROMBOCYTOPENIA [None]
